FAERS Safety Report 5536495-X (Version None)
Quarter: 2007Q4

REPORT INFORMATION
  Report Type: 
  Country: None (occurrence: None)
  Receive Date: 20071206
  Receipt Date: 20071017
  Transmission Date: 20080405
  Serious: Yes (Hospitalization)
  Sender: FDA-Public Use
  Company Number: US-AMGEN-US159305

PATIENT
  Sex: Male
  Weight: 90.8 kg

DRUGS (3)
  1. ENBREL [Suspect]
     Indication: RHEUMATOID ARTHRITIS
     Route: 058
     Dates: start: 20011201, end: 20051001
  2. PREDNISONE TAB [Concomitant]
     Route: 065
  3. METHOTREXATE [Concomitant]
     Route: 065
     Dates: start: 20040329

REACTIONS (3)
  - ARTHRITIS INFECTIVE [None]
  - PSEUDOMONAL SEPSIS [None]
  - STAPHYLOCOCCAL INFECTION [None]
